FAERS Safety Report 16159986 (Version 1)
Quarter: 2019Q2

REPORT INFORMATION
  Report Type: Report from Study
  Country: BR (occurrence: BR)
  Receive Date: 20190404
  Receipt Date: 20190404
  Transmission Date: 20190711
  Serious: Yes (Hospitalization, Other)
  Sender: FDA-Public Use
  Company Number: BR-ALXN-A201712581AA

PATIENT
  Age: 64 Year
  Sex: Female
  Weight: 63 kg

DRUGS (2)
  1. SOLIRIS [Suspect]
     Active Substance: ECULIZUMAB
     Indication: PAROXYSMAL NOCTURNAL HAEMOGLOBINURIA
     Dosage: 600 MG, QW
     Route: 042
     Dates: start: 20130709, end: 20130730
  2. SOLIRIS [Suspect]
     Active Substance: ECULIZUMAB
     Dosage: 900 MG, Q2W
     Route: 042
     Dates: start: 20130806

REACTIONS (10)
  - Haemolysis [Recovered/Resolved]
  - Fatigue [Recovered/Resolved]
  - Dysphagia [Not Recovered/Not Resolved]
  - Underdose [Recovered/Resolved]
  - Reticulocyte count increased [Recovered/Resolved]
  - Mobility decreased [Recovered/Resolved]
  - Haematocrit increased [Recovered/Resolved]
  - Asthenia [Recovered/Resolved]
  - Blood lactate dehydrogenase increased [Recovered/Resolved]
  - Haematuria [Recovered/Resolved]

NARRATIVE: CASE EVENT DATE: 20171013
